FAERS Safety Report 5222657-8 (Version None)
Quarter: 2006Q4

REPORT INFORMATION
  Report Type: 
  Country: None (occurrence: None)
  Receive Date: 20061205
  Receipt Date: 20050503
  Transmission Date: 20070319
  Serious: Yes (Hospitalization)
  Sender: FDA-Public Use
  Company Number: 2005UW06950

PATIENT
  Age: 80 Year
  Sex: Female
  Weight: 71.6683 kg

DRUGS (3)
  1. PRILOSEC OTC [Suspect]
     Indication: ULCER
     Dates: start: 20050426, end: 20050429
  2. LOPRESSA [Concomitant]
  3. LASIX [Concomitant]

REACTIONS (1)
  - CHEST PAIN [None]
